FAERS Safety Report 5139808-6 (Version None)
Quarter: 2006Q4

REPORT INFORMATION
  Report Type: 
  Country: None (occurrence: None)
  Receive Date: 20060905
  Receipt Date: 20060427
  Transmission Date: 20070319
  Serious: No
  Sender: FDA-Public Use
  Company Number: 35009

PATIENT
  Sex: Female

DRUGS (14)
  1. NEVANAC [Suspect]
     Indication: PROPHYLAXIS
  2. BSS [Concomitant]
  3. MIOTIC [Concomitant]
  4. VIGAMOX [Concomitant]
  5. ECONOPRED PLUS [Concomitant]
  6. TETRACAINE 0.5% STERI-UNITS [Concomitant]
  7. CELEBREX [Concomitant]
  8. HYDROCHLOROTHIAZIDE [Concomitant]
  9. GEMFIBROZIL [Concomitant]
  10. DIGITEK [Concomitant]
  11. TOPROL-XL [Concomitant]
  12. FOSAMAX [Concomitant]
  13. HYDROCODONE [Concomitant]
  14. CELAXIN [Concomitant]

REACTIONS (1)
  - ANTERIOR CHAMBER INFLAMMATION [None]
